FAERS Safety Report 9156721 (Version 1)
Quarter: 2013Q1

REPORT INFORMATION
  Report Type: Spontaneous
  Country: US (occurrence: None)
  Receive Date: 20130308
  Receipt Date: 20130308
  Transmission Date: 20140127
  Serious: Yes (Hospitalization)
  Sender: FDA-Public Use
  Company Number: None

PATIENT
  Age: 77 Year
  Sex: Male
  Weight: 89.5 kg

DRUGS (1)
  1. CIPROFLOXACIN [Suspect]
     Indication: CELLULITIS
     Route: 048
     Dates: start: 20121102, end: 20121120

REACTIONS (4)
  - Rash [None]
  - Renal impairment [None]
  - Vasculitis [None]
  - Henoch-Schonlein purpura [None]
